FAERS Safety Report 4471966-9 (Version None)
Quarter: 2004Q4

REPORT INFORMATION
  Report Type: 
  Country: None (occurrence: None)
  Receive Date: 20041012
  Receipt Date: 20040810
  Transmission Date: 20050328
  Serious: Yes (Death, Other)
  Sender: FDA-Public Use
  Company Number: PHBS2004IE10505

PATIENT
  Age: 19 Year
  Sex: Male

DRUGS (3)
  1. ZOMETA [Suspect]
     Indication: EWING'S SARCOMA
     Dosage: 4 MG
  2. OPIOIDS [Concomitant]
     Dosage: 160 MG, BID
  3. DEXAMETHASONE [Concomitant]
     Dosage: 4 MG/D

REACTIONS (3)
  - DEATH [None]
  - INFLUENZA LIKE ILLNESS [None]
  - PAIN [None]
